FAERS Safety Report 7828828-6 (Version None)
Quarter: 2011Q4

REPORT INFORMATION
  Report Type: 
  Country: None (occurrence: None)
  Receive Date: 20111020
  Receipt Date: 20111012
  Transmission Date: 20120403
  Serious: Yes (Hospitalization)
  Sender: FDA-Public Use
  Company Number: IT-BAYER-2011-098358

PATIENT
  Age: 34 Year
  Sex: Male

DRUGS (1)
  1. KETOPROFEN [Suspect]
     Dosage: UNK
     Dates: start: 20110919, end: 20110919

REACTIONS (9)
  - GENERALISED ERYTHEMA [None]
  - CONJUNCTIVAL HYPERAEMIA [None]
  - PRURITUS [None]
  - EYELID OEDEMA [None]
  - ANAPHYLACTIC REACTION [None]
  - URTICARIA [None]
  - ANGIOEDEMA [None]
  - EAR PRURITUS [None]
  - DYSPNOEA [None]
